FAERS Safety Report 18999107 (Version 1)
Quarter: 2021Q1

REPORT INFORMATION
  Report Type: Spontaneous
  Country: US (occurrence: US)
  Receive Date: 20210312
  Receipt Date: 20210312
  Transmission Date: 20210420
  Serious: Yes (Hospitalization, Other)
  Sender: FDA-Public Use
  Company Number: US-GRANULES-US-2021GRALIT00181

PATIENT
  Age: 84 Year
  Sex: Female

DRUGS (5)
  1. INSULIN [Interacting]
     Active Substance: INSULIN NOS
     Indication: EUGLYCAEMIC DIABETIC KETOACIDOSIS
     Route: 041
  2. METFORMIN HCL [Suspect]
     Active Substance: METFORMIN HYDROCHLORIDE
     Indication: TYPE 2 DIABETES MELLITUS
     Route: 065
  3. SODIUM BICARBONATE. [Interacting]
     Active Substance: SODIUM BICARBONATE
     Indication: EUGLYCAEMIC DIABETIC KETOACIDOSIS
  4. DEXTROSE 5% [Interacting]
     Active Substance: DEXTROSE
     Indication: EUGLYCAEMIC DIABETIC KETOACIDOSIS
     Route: 065
  5. SODIUM BICARBONATE. [Interacting]
     Active Substance: SODIUM BICARBONATE
     Indication: ANION GAP
     Route: 041

REACTIONS (2)
  - Lactic acidosis [Recovered/Resolved]
  - Euglycaemic diabetic ketoacidosis [Recovered/Resolved]
